FAERS Safety Report 17858320 (Version 2)
Quarter: 2020Q2

REPORT INFORMATION
  Report Type: Report from Study
  Country: None (occurrence: US)
  Receive Date: 20200604
  Receipt Date: 20200605
  Transmission Date: 20200714
  Serious: No
  Sender: FDA-Public Use
  Company Number: US-US WORLDMEDS, LLC-USW201906-001132

PATIENT
  Age: 74 Year
  Sex: Male

DRUGS (15)
  1. APOKYN [Suspect]
     Active Substance: APOMORPHINE HYDROCHLORIDE
     Route: 058
     Dates: start: 20190411, end: 201906
  2. APOKYN [Suspect]
     Active Substance: APOMORPHINE HYDROCHLORIDE
     Indication: PARKINSON^S DISEASE
     Dosage: HE HAD GONE UP TO ^25 CLICKS^ AND THEN ^28 CLICKS^
     Route: 058
     Dates: start: 20190411, end: 201906
  3. ALLOPURINOL. [Concomitant]
     Active Substance: ALLOPURINOL
  4. FENOFIBRATE. [Concomitant]
     Active Substance: FENOFIBRATE
  5. SINAMET [Concomitant]
  6. KLONOPIN [Concomitant]
     Active Substance: CLONAZEPAM
  7. APOKYN [Suspect]
     Active Substance: APOMORPHINE HYDROCHLORIDE
     Dates: start: 201906, end: 201906
  8. APOKYN [Suspect]
     Active Substance: APOMORPHINE HYDROCHLORIDE
     Dates: start: 20190625, end: 201906
  9. TAMSULOSIN [Concomitant]
     Active Substance: TAMSULOSIN
  10. MEMANTINE. [Concomitant]
     Active Substance: MEMANTINE
  11. LASIX [Concomitant]
     Active Substance: FUROSEMIDE
  12. CLONAZEPAM. [Concomitant]
     Active Substance: CLONAZEPAM
  13. GOCOVRI [Concomitant]
     Active Substance: AMANTADINE
  14. CBD OIL [Concomitant]
     Active Substance: CANNABIDIOL\HERBALS
  15. ASA [Concomitant]
     Active Substance: ASPIRIN

REACTIONS (2)
  - Confusional state [Recovering/Resolving]
  - Therapy non-responder [Unknown]

NARRATIVE: CASE EVENT DATE: 201906
